FAERS Safety Report 13101956 (Version 1)
Quarter: 2017Q1

REPORT INFORMATION
  Report Type: Spontaneous
  Country: US (occurrence: US)
  Receive Date: 20170110
  Receipt Date: 20170110
  Transmission Date: 20170428
  Serious: No
  Sender: FDA-Public Use
  Company Number: US-PFIZER INC-2017004502

PATIENT
  Age: 83 Year
  Sex: Female

DRUGS (1)
  1. CORTISONE ACETATE. [Suspect]
     Active Substance: CORTISONE ACETATE
     Dosage: UNK (SHOTS IN WRIST AND IN KNEE AT SEPARATE TIMES)

REACTIONS (3)
  - Drug hypersensitivity [Unknown]
  - Nervousness [Unknown]
  - Insomnia [Unknown]
